FAERS Safety Report 8609839-X (Version None)
Quarter: 2012Q3

REPORT INFORMATION
  Report Type: 
  Country: None (occurrence: None)
  Receive Date: 20120821
  Receipt Date: 20120808
  Transmission Date: 20120928
  Serious: Yes (Other)
  Sender: FDA-Public Use
  Company Number: PHHY2012BR071176

PATIENT
  Sex: Female
  Weight: 72 kg

DRUGS (5)
  1. HYDERGINE [Suspect]
     Indication: CONFUSIONAL STATE
     Dosage: 01 CAPSULES AT NIGHT
     Route: 048
  2. METFORMIN [Concomitant]
     Indication: DIABETES MELLITUS
     Dosage: 1 DF, DAILY
     Route: 048
  3. ACETYLSALICYLIC ACID SRT [Concomitant]
     Indication: ANTICOAGULANT THERAPY
     Dosage: 2 DF, UNK (AFTER LUNCH)
     Route: 048
  4. BENEFIBER [Suspect]
     Indication: CONSTIPATION
     Dosage: 1 TSP, DAILY
     Route: 048
  5. ENALAPRIL MALEATE [Concomitant]
     Indication: HYPERTENSION
     Dosage: 1 DF, BID (1 AT MORNING AND 1 AT NIGHT)
     Route: 048

REACTIONS (10)
  - LAZINESS [None]
  - MEMORY IMPAIRMENT [None]
  - BALANCE DISORDER [None]
  - CONFUSIONAL STATE [None]
  - SOMNOLENCE [None]
  - INSOMNIA [None]
  - FALL [None]
  - COMMUNICATION DISORDER [None]
  - ANAEMIA [None]
  - MOOD ALTERED [None]
